FAERS Safety Report 24354413 (Version 1)
Quarter: 2024Q3

REPORT INFORMATION
  Report Type: Spontaneous
  Country: FR (occurrence: FR)
  Receive Date: 20240923
  Receipt Date: 20240923
  Transmission Date: 20241017
  Serious: Yes (Hospitalization)
  Sender: PURDUE
  Company Number: FR-PURDUE-USA-2024-0312111

PATIENT
  Age: 26 Year
  Sex: Male

DRUGS (1)
  1. OXYCODONE HYDROCHLORIDE [Suspect]
     Active Substance: OXYCODONE HYDROCHLORIDE
     Indication: Product used for unknown indication
     Dosage: UNK
     Route: 065
     Dates: start: 202110

REACTIONS (2)
  - Drug dependence [Unknown]
  - Therapy change [Unknown]

NARRATIVE: CASE EVENT DATE: 20211001
